FAERS Safety Report 4815923-9 (Version None)
Quarter: 2005Q4

REPORT INFORMATION
  Report Type: 
  Country: None (occurrence: None)
  Receive Date: 20051031
  Receipt Date: 20051024
  Transmission Date: 20060501
  Serious: Yes (Hospitalization)
  Sender: FDA-Public Use
  Company Number: GB-ABBOTT-05P-167-0315058-00

PATIENT
  Age: 52 Year
  Sex: Male

DRUGS (6)
  1. CLARITHROMYCIN [Suspect]
     Indication: HELICOBACTER INFECTION
     Route: 048
     Dates: start: 20050913
  2. WARFARIN [Concomitant]
     Indication: DRUG USE FOR UNKNOWN INDICATION
  3. OMEPRAZOLE [Concomitant]
     Indication: HELICOBACTER INFECTION
     Dates: start: 20050913
  4. AMOXICILLIN [Concomitant]
     Indication: HELICOBACTER INFECTION
     Dates: start: 20050913
  5. SEVELAMER HYDROCHLORIDE [Concomitant]
     Indication: BLOOD PHOSPHORUS DECREASED
     Route: 048
  6. CALCITRIOL [Concomitant]
     Indication: VITAMIN D DEFICIENCY
     Route: 048

REACTIONS (5)
  - ABNORMAL BEHAVIOUR [None]
  - ACUTE PSYCHOSIS [None]
  - AGGRESSION [None]
  - CONFUSIONAL STATE [None]
  - HALLUCINATION, VISUAL [None]
